FAERS Safety Report 20043316 (Version 2)
Quarter: 2022Q1

REPORT INFORMATION
  Report Type: Spontaneous
  Country: US (occurrence: US)
  Receive Date: 20211108
  Receipt Date: 20220217
  Transmission Date: 20220423
  Serious: No
  Sender: FDA-Public Use
  Company Number: US-BRISTOL-MYERS SQUIBB COMPANY-BMS-2021-117538

PATIENT
  Age: 70 Year
  Sex: Female

DRUGS (1)
  1. ORENCIA [Suspect]
     Active Substance: ABATACEPT
     Indication: Rheumatoid arthritis
     Dosage: 125MG/ML WEEKLY
     Route: 058
     Dates: start: 20210406

REACTIONS (5)
  - Drug ineffective [Unknown]
  - Asthenia [Unknown]
  - Device difficult to use [Unknown]
  - Incorrect dose administered [Unknown]
  - Pain in extremity [Unknown]
